FAERS Safety Report 5956359-7 (Version None)
Quarter: 2008Q4

REPORT INFORMATION
  Report Type: 
  Country: None (occurrence: None)
  Receive Date: 20081112
  Receipt Date: 20081106
  Transmission Date: 20090506
  Serious: Yes (Other)
  Sender: FDA-Public Use
  Company Number: 032069

PATIENT
  Age: 45 Year
  Sex: Male
  Weight: 128.3 kg

DRUGS (10)
  1. ADDERALL 20 [Suspect]
     Indication: TIC
     Dosage: 20 MG, TID, ORAL
     Route: 048
     Dates: start: 20080101
  2. AMPHETAMINE AND DEXTROAMPHETAMINE SALTS [Suspect]
     Dosage: 20 MG, TID, ORAL
     Route: 048
     Dates: start: 20070101
  3. ACIPHEX [Concomitant]
  4. ATENOLOL [Concomitant]
  5. CODEINE (CODEINE) [Concomitant]
  6. TRIAMTERENE AND HYDROCHLOROTHIAZIDE [Concomitant]
  7. LEVOTHYROXINE SODIUM [Concomitant]
  8. LISINOPRIL [Concomitant]
  9. SEROQUEL [Concomitant]
  10. XANAX [Concomitant]

REACTIONS (8)
  - CONDITION AGGRAVATED [None]
  - DECREASED INTEREST [None]
  - GENERALISED ANXIETY DISORDER [None]
  - HYPERSOMNIA [None]
  - MEMORY IMPAIRMENT [None]
  - OFF LABEL USE [None]
  - SOMNOLENCE [None]
  - SUSPICIOUSNESS [None]
